FAERS Safety Report 16644781 (Version 2)
Quarter: 2019Q3

REPORT INFORMATION
  Report Type: Spontaneous
  Country: US (occurrence: US)
  Receive Date: 20190729
  Receipt Date: 20190912
  Transmission Date: 20191004
  Serious: No
  Sender: FDA-Public Use
  Company Number: US-PFIZER INC-2019318211

PATIENT
  Age: 41 Year
  Sex: Male
  Weight: 99.77 kg

DRUGS (4)
  1. PRISTIQ EXTENDED-RELEASE [Suspect]
     Active Substance: DESVENLAFAXINE SUCCINATE
     Dosage: 100 MG, UNK
  2. SEROQUEL [Concomitant]
     Active Substance: QUETIAPINE FUMARATE
     Indication: SLEEP DISORDER
     Dosage: 50 MG, 1X/DAY (50 MG ONCE AT NIGHT TO HELP SLEEP)
     Route: 048
     Dates: start: 201903
  3. PRISTIQ EXTENDED-RELEASE [Suspect]
     Active Substance: DESVENLAFAXINE SUCCINATE
     Indication: DEPRESSION
     Dosage: 100 MG, 1X/DAY
     Route: 048
     Dates: end: 20190710
  4. LAMICTAL [Concomitant]
     Active Substance: LAMOTRIGINE
     Indication: BIPOLAR DISORDER
     Dosage: 200 MG, 1X/DAY (THINKS IT IS THE MAX DOSE)
     Route: 048

REACTIONS (3)
  - Irritability [Recovered/Resolved]
  - Intentional product misuse [Recovered/Resolved]
  - Thyroid disorder [Recovered/Resolved]

NARRATIVE: CASE EVENT DATE: 20190715
